FAERS Safety Report 17104956 (Version 3)
Quarter: 2022Q3

REPORT INFORMATION
  Report Type: Report from Study
  Country: IN (occurrence: IN)
  Receive Date: 20191203
  Receipt Date: 20220825
  Transmission Date: 20221027
  Serious: Yes (Other)
  Sender: FDA-Public Use
  Company Number: NVSC2019IN056042

PATIENT
  Sex: Male

DRUGS (5)
  1. SECUKINUMAB [Suspect]
     Active Substance: SECUKINUMAB
     Indication: Ankylosing spondylitis
     Dosage: 150 MG, QMO
     Route: 058
     Dates: start: 20190905
  2. SECUKINUMAB [Suspect]
     Active Substance: SECUKINUMAB
     Indication: Psoriasis
     Dosage: 150 MG, QMO
     Route: 058
     Dates: start: 20191128
  3. SECUKINUMAB [Suspect]
     Active Substance: SECUKINUMAB
     Dosage: 3 DF, Q2MO (300MG FOR 3 DOSES ONCE IN 2 MONTHS)
     Route: 058
     Dates: start: 20200126
  4. SECUKINUMAB [Suspect]
     Active Substance: SECUKINUMAB
     Dosage: UNK, QMO
     Route: 058
  5. METHOTREXATE [Suspect]
     Active Substance: METHOTREXATE
     Indication: Product used for unknown indication
     Dosage: UNK
     Route: 065

REACTIONS (4)
  - Cutaneous vasculitis [Unknown]
  - Skin lesion [Unknown]
  - Dizziness [Unknown]
  - Inappropriate schedule of product administration [Unknown]
